FAERS Safety Report 19508638 (Version 1)
Quarter: 2021Q3

REPORT INFORMATION
  Report Type: Spontaneous
  Country: DE (occurrence: DE)
  Receive Date: 20210709
  Receipt Date: 20210709
  Transmission Date: 20211014
  Serious: Yes (Hospitalization)
  Sender: FDA-Public Use
  Company Number: DE-AUROBINDO-AUR-APL-2021-028821

PATIENT
  Age: 72 Year
  Sex: Male

DRUGS (14)
  1. BISOPROLOL [Concomitant]
     Active Substance: BISOPROLOL
     Indication: PRODUCT USED FOR UNKNOWN INDICATION
     Dosage: UNK
     Route: 065
  2. PREDNISOLONE. [Concomitant]
     Active Substance: PREDNISOLONE
     Indication: IMMUNOSUPPRESSANT DRUG THERAPY
     Dosage: UNK
     Route: 042
  3. APIXABAN [Concomitant]
     Active Substance: APIXABAN
     Indication: PRODUCT USED FOR UNKNOWN INDICATION
     Dosage: UNK
     Route: 065
  4. PANTOPRAZOLE [Suspect]
     Active Substance: PANTOPRAZOLE
     Indication: GASTROOESOPHAGEAL REFLUX DISEASE
     Dosage: 40 MILLIGRAM, ONCE A DAY
     Route: 065
  5. DABRAFENIB;TRAMETINIB [Suspect]
     Active Substance: DABRAFENIB\TRAMETINIB
     Dosage: 302 MILLIGRAM, DAILY (300/2 MG)
     Route: 065
  6. PEMBROLIZUMAB. [Suspect]
     Active Substance: PEMBROLIZUMAB
     Indication: FACTOR V LEIDEN MUTATION
     Dosage: 2 MILLIGRAM/KILOGRAM
     Route: 065
  7. PREDNISOLONE. [Concomitant]
     Active Substance: PREDNISOLONE
     Dosage: UNK
     Route: 048
  8. RANITIDINE. [Suspect]
     Active Substance: RANITIDINE
     Indication: GASTROOESOPHAGEAL REFLUX DISEASE
     Dosage: 150 MILLIGRAM, DAILY
     Route: 065
  9. RIBOCICLIB. [Concomitant]
     Active Substance: RIBOCICLIB
     Indication: DISEASE PROGRESSION
     Dosage: UNK
     Route: 065
  10. ENCORAFENIB [Concomitant]
     Active Substance: ENCORAFENIB
     Indication: PRODUCT USED FOR UNKNOWN INDICATION
     Dosage: UNK
     Route: 065
  11. DABRAFENIB;TRAMETINIB [Suspect]
     Active Substance: DABRAFENIB\TRAMETINIB
     Indication: FACTOR V LEIDEN MUTATION
     Dosage: 302 MILLIGRAM, DAILY (300/2 MG)
     Route: 065
  12. BINIMETINIB [Concomitant]
     Active Substance: BINIMETINIB
     Indication: PRODUCT USED FOR UNKNOWN INDICATION
     Dosage: UNK
     Route: 065
  13. DABRAFENIB;TRAMETINIB [Suspect]
     Active Substance: DABRAFENIB\TRAMETINIB
     Dosage: 201.5 MILLIGRAM, DAILY (200/1.5 MG)
     Route: 065
  14. ATORVASTATIN [Concomitant]
     Active Substance: ATORVASTATIN
     Indication: HYPERCHOLESTEROLAEMIA
     Dosage: UNK
     Route: 065

REACTIONS (1)
  - Primary biliary cholangitis [Unknown]
